FAERS Safety Report 15977519 (Version 1)
Quarter: 2019Q1

REPORT INFORMATION
  Report Type: Spontaneous
  Country: GB (occurrence: GB)
  Receive Date: 20190218
  Receipt Date: 20190218
  Transmission Date: 20190418
  Serious: Yes (Hospitalization)
  Sender: FDA-Public Use
  Company Number: GB-TEVA-2019-GB-1012342

PATIENT
  Age: 47 Year
  Sex: Male

DRUGS (9)
  1. THIAMINE. [Concomitant]
     Active Substance: THIAMINE
     Dosage: 50 MILLIGRAM DAILY; MORNING
     Route: 048
  2. MST CONTINUS [Concomitant]
     Active Substance: MORPHINE SULFATE
     Dosage: 120 MILLIGRAM DAILY;
     Route: 048
  3. COCODAMOL [Concomitant]
     Active Substance: ACETAMINOPHEN\CODEINE PHOSPHATE
     Dosage: FOUR TIMES A DAY, 30MG/500MG
     Route: 048
  4. VITAMIN B COMPOUND STRONG [Concomitant]
     Dosage: 3 DOSAGE FORMS DAILY;
     Route: 048
  5. CARBOPLATIN. [Suspect]
     Active Substance: CARBOPLATIN
     Indication: CHEMOTHERAPY
     Dosage: 450MG/45ML
     Route: 065
  6. FLUOROURACIL. [Suspect]
     Active Substance: FLUOROURACIL
     Indication: CHEMOTHERAPY
     Route: 065
  7. BISOPROLOL [Concomitant]
     Active Substance: BISOPROLOL
     Dosage: 2.5 MILLIGRAM DAILY; MORNING.
     Route: 048
  8. PREGABALIN. [Concomitant]
     Active Substance: PREGABALIN
     Dosage: 200 MILLIGRAM DAILY;
     Route: 048
  9. ORAMORPH [Concomitant]
     Active Substance: MORPHINE SULFATE
     Dosage: FOUR TIMES A DAY, 10MG/5ML
     Route: 048

REACTIONS (2)
  - Pancytopenia [Recovered/Resolved]
  - Neutropenic sepsis [Unknown]
